FAERS Safety Report 6963504-3 (Version None)
Quarter: 2010Q3

REPORT INFORMATION
  Report Type: 
  Country: None (occurrence: None)
  Receive Date: 20100902
  Receipt Date: 20100825
  Transmission Date: 20110219
  Serious: Yes (Hospitalization)
  Sender: FDA-Public Use
  Company Number: US-US-EMD SERONO, INC.-7002951

PATIENT
  Sex: Female
  Weight: 97 kg

DRUGS (11)
  1. REBIF [Suspect]
     Indication: MULTIPLE SCLEROSIS
     Route: 058
     Dates: start: 20090209, end: 20100601
  2. PROGESTERONE INTRAUTERINE DEVICE [Concomitant]
  3. CYMBALTA [Concomitant]
     Indication: DEPRESSION
  4. ATIVAN [Concomitant]
     Indication: ANXIETY
  5. LUNESTA [Concomitant]
     Indication: SLEEP DISORDER
  6. UNSPECIFIED PURPLE PILL [Concomitant]
     Indication: GASTROOESOPHAGEAL REFLUX DISEASE
  7. UNSPECIFIED PURPLE PILL [Concomitant]
     Indication: HIATUS HERNIA
  8. RANITIDINE [Concomitant]
     Indication: GASTROOESOPHAGEAL REFLUX DISEASE
  9. RANITIDINE [Concomitant]
     Indication: HIATUS HERNIA
  10. PROVIGIL [Concomitant]
  11. NEURONTIN [Concomitant]

REACTIONS (8)
  - DEPRESSION [None]
  - HYPOAESTHESIA [None]
  - INJECTION SITE INDURATION [None]
  - INJECTION SITE PAIN [None]
  - PRODUCT TASTE ABNORMAL [None]
  - SUICIDAL IDEATION [None]
  - THYROID CYST [None]
  - WEIGHT INCREASED [None]
